FAERS Safety Report 9691155 (Version 4)
Quarter: 2014Q3

REPORT INFORMATION
  Report Type: Spontaneous
  Country: DE (occurrence: ES)
  Receive Date: 20131115
  Receipt Date: 20140725
  Transmission Date: 20150326
  Serious: Yes (Other)
  Sender: FDA-Public Use
  Company Number: DE-GLAXOSMITHKLINE-D0081769A

PATIENT
  Age: 84 Year
  Sex: Male

DRUGS (5)
  1. DUODART [Suspect]
     Active Substance: DUTASTERIDE\TAMSULOSIN
     Indication: BENIGN PROSTATIC HYPERPLASIA
     Dosage: .9MG SINGLE DOSE
     Route: 048
     Dates: start: 20131102, end: 20131102
  2. ENALAPRIL [Concomitant]
     Active Substance: ENALAPRIL
     Dosage: 5MG PER DAY
     Route: 048
  3. VIANI [Concomitant]
     Active Substance: FLUTICASONE PROPIONATE\SALMETEROL XINAFOATE
     Dosage: 1PUFF TWICE PER DAY
     Route: 055
  4. SPIRIVA [Concomitant]
     Active Substance: TIOTROPIUM BROMIDE MONOHYDRATE
     Dosage: 1PUFF PER DAY
     Route: 055
  5. DUODART [Concomitant]
     Active Substance: DUTASTERIDE\TAMSULOSIN
     Indication: BENIGN PROSTATIC HYPERPLASIA
     Dosage: .9MG AT NIGHT
     Route: 048
     Dates: start: 2012

REACTIONS (3)
  - Foreign body [Recovered/Resolved]
  - Haematemesis [Recovered/Resolved]
  - Choking [Recovered/Resolved]

NARRATIVE: CASE EVENT DATE: 20131102
